FAERS Safety Report 4789316-7 (Version None)
Quarter: 2005Q3

REPORT INFORMATION
  Report Type: 
  Country: None (occurrence: None)
  Receive Date: 20050929
  Receipt Date: 20050803
  Transmission Date: 20060218
  Serious: No
  Sender: FDA-Public Use
  Company Number: 05P-163-0307604-00

PATIENT
  Age: 33 Year
  Sex: Female
  Weight: 49.8957 kg

DRUGS (9)
  1. HUMIRA [Suspect]
     Indication: ANKYLOSING SPONDYLITIS
     Dosage: 40 MG, 1 IN 2 WK, SUBCUTANEOUS
     Route: 058
     Dates: start: 20050526
  2. METHOTREXATE [Concomitant]
  3. BUSPIRONE HCL [Concomitant]
  4. MIRAPEX [Concomitant]
  5. FOLIC ACID [Concomitant]
  6. HYDROMORPHONE HYDROCHLORIDE [Concomitant]
  7. OXYCODONE HCL [Concomitant]
  8. LUNESTA [Concomitant]
  9. CYMBALTA [Concomitant]

REACTIONS (1)
  - INJECTION SITE IRRITATION [None]
